FAERS Safety Report 25477740 (Version 1)
Quarter: 2025Q2

REPORT INFORMATION
  Report Type: Spontaneous
  Country: BE (occurrence: BE)
  Receive Date: 20250625
  Receipt Date: 20250625
  Transmission Date: 20250717
  Serious: Yes (Hospitalization)
  Sender: ALEXION PHARMACEUTICALS
  Company Number: BE-AstraZeneca-CH-00896438A

PATIENT

DRUGS (2)
  1. FASENRA [Suspect]
     Active Substance: BENRALIZUMAB
     Indication: Asthma-chronic obstructive pulmonary disease overlap syndrome
     Dosage: 30 MILLIGRAM, Q8W
  2. TEZSPIRE [Concomitant]
     Active Substance: TEZEPELUMAB-EKKO
     Route: 065

REACTIONS (3)
  - Inappropriate schedule of product administration [Recovering/Resolving]
  - Condition aggravated [Recovering/Resolving]
  - Eosinophil count increased [Recovering/Resolving]
